FAERS Safety Report 7508792-X (Version None)
Quarter: 2011Q2

REPORT INFORMATION
  Report Type: 
  Country: None (occurrence: None)
  Receive Date: 20110527
  Receipt Date: 20110301
  Transmission Date: 20111010
  Serious: No
  Sender: FDA-Public Use
  Company Number: A0916103A

PATIENT
  Age: 45 Year
  Sex: Male

DRUGS (5)
  1. KLONOPIN [Concomitant]
  2. REMERON [Concomitant]
  3. VENTOLIN [Suspect]
     Route: 055
     Dates: start: 20110222
  4. DILANTIN [Concomitant]
  5. IBUPROFEN [Concomitant]

REACTIONS (1)
  - DRUG SCREEN FALSE POSITIVE [None]
